FAERS Safety Report 8384350-2 (Version None)
Quarter: 2012Q2

REPORT INFORMATION
  Report Type: 
  Country: None (occurrence: None)
  Receive Date: 20120524
  Receipt Date: 20120515
  Transmission Date: 20120825
  Serious: Yes (Life-Threatening)
  Sender: FDA-Public Use
  Company Number: JP-CELGENEUS-087-50794-12052620

PATIENT
  Sex: Male
  Weight: 59 kg

DRUGS (23)
  1. VIDAZA [Suspect]
     Dosage: 75 MILLIGRAM/SQ. METER
     Route: 041
     Dates: start: 20110809, end: 20110815
  2. LANSOPRAZOLE [Concomitant]
     Route: 065
  3. VIDAZA [Suspect]
     Dosage: 75 MILLIGRAM/SQ. METER
     Route: 058
     Dates: start: 20110502, end: 20110508
  4. ZOFRAN [Concomitant]
     Route: 065
     Dates: start: 20110503, end: 20110508
  5. MAXIPIME [Concomitant]
     Route: 065
     Dates: start: 20110809, end: 20110822
  6. VIDAZA [Suspect]
     Dosage: 75 MILLIGRAM/SQ. METER
     Route: 065
  7. MAXIPIME [Concomitant]
     Route: 065
     Dates: start: 20110704, end: 20110709
  8. MAXIPIME [Concomitant]
     Route: 065
     Dates: start: 20110830, end: 20110901
  9. UNIPHYL LA [Concomitant]
     Route: 065
  10. GASMOTIN [Concomitant]
     Route: 065
  11. VIDAZA [Suspect]
     Dosage: 75 MILLIGRAM/SQ. METER
     Route: 041
     Dates: start: 20111213, end: 20111219
  12. ALLOPURINOL [Concomitant]
     Route: 065
     Dates: start: 20110502, end: 20110511
  13. VANCOMYCIN [Concomitant]
     Route: 065
     Dates: start: 20110706, end: 20110719
  14. ZOFRAN [Concomitant]
     Route: 065
     Dates: start: 20110616, end: 20110622
  15. ZOFRAN [Concomitant]
     Route: 065
     Dates: start: 20110809, end: 20110815
  16. SINGULAIR [Concomitant]
     Route: 065
  17. VIDAZA [Suspect]
     Dosage: 75 MILLIGRAM/SQ. METER
     Route: 065
     Dates: start: 20110615, end: 20110621
  18. VIDAZA [Suspect]
     Dosage: 75 MILLIGRAM/SQ. METER
     Route: 065
  19. MEROPENEM [Concomitant]
     Route: 065
     Dates: start: 20110709, end: 20110719
  20. CEFDINIR [Concomitant]
     Route: 065
     Dates: start: 20111212, end: 20111226
  21. MAXIPIME [Concomitant]
     Route: 065
     Dates: start: 20110520, end: 20110530
  22. KYTRIL [Concomitant]
     Route: 065
     Dates: start: 20111213, end: 20111219
  23. DORIPENEM MONOHYDRATE [Concomitant]
     Route: 065
     Dates: start: 20110901, end: 20110907

REACTIONS (1)
  - FEBRILE NEUTROPENIA [None]
